FAERS Safety Report 7258755-7 (Version None)
Quarter: 2011Q1

REPORT INFORMATION
  Report Type: 
  Country: None (occurrence: None)
  Receive Date: 20110129
  Receipt Date: 20100512
  Transmission Date: 20110831
  Serious: No
  Sender: FDA-Public Use
  Company Number: US-ABBOTT-10P-163-0645166-00

PATIENT
  Sex: Female
  Weight: 56.75 kg

DRUGS (7)
  1. HUMIRA [Suspect]
     Indication: RHEUMATOID ARTHRITIS
     Route: 058
     Dates: start: 20080601, end: 20100101
  2. VICODIN [Concomitant]
     Indication: RHEUMATOID ARTHRITIS
  3. PREDNISONE [Concomitant]
     Indication: RHEUMATOID ARTHRITIS
  4. PROPRANOLOL [Concomitant]
     Indication: HYPERTENSION
  5. HUMIRA [Suspect]
     Route: 058
     Dates: start: 20100201
  6. METHOTREXATE [Concomitant]
     Indication: RHEUMATOID ARTHRITIS
  7. RELAFEN [Concomitant]
     Indication: RHEUMATOID ARTHRITIS

REACTIONS (5)
  - RHEUMATOID ARTHRITIS [None]
  - DRUG DOSE OMISSION [None]
  - OEDEMA PERIPHERAL [None]
  - MALAISE [None]
  - PAIN [None]
